FAERS Safety Report 5004877-0 (Version None)
Quarter: 2006Q1

REPORT INFORMATION
  Report Type: 
  Country: None (occurrence: None)
  Receive Date: 20060321
  Receipt Date: 20051223
  Transmission Date: 20060701
  Serious: No
  Sender: FDA-Public Use
  Company Number: YPA20060014

PATIENT
  Age: 64 Year
  Sex: Female

DRUGS (4)
  1. VESICARE [Suspect]
     Indication: INCONTINENCE
     Dosage: 10 MG, UNK, ORAL
     Route: 048
     Dates: start: 20050601, end: 20051221
  2. ZOLOFT [Concomitant]
  3. TRILAFON [Concomitant]
  4. TRAZOD (TRAZODONE) [Concomitant]

REACTIONS (2)
  - ALOPECIA [None]
  - DRUG INEFFECTIVE [None]
